FAERS Safety Report 8817040 (Version 1)
Quarter: 2012Q4

REPORT INFORMATION
  Report Type: Spontaneous
  Country: US (occurrence: None)
  Receive Date: 20121003
  Receipt Date: 20121003
  Transmission Date: 20130627
  Serious: Yes (Other)
  Sender: FDA-Public Use
  Company Number: None

PATIENT
  Age: 48 Year
  Sex: Male
  Weight: 104.33 kg

DRUGS (1)
  1. NEXAVAR [Suspect]
     Indication: MALIGNANT NEOPLASM OF LIVER, PRIMARY
     Route: 048
     Dates: start: 20120723

REACTIONS (5)
  - Diarrhoea [None]
  - Confusional state [None]
  - Hallucination, visual [None]
  - Hallucination, auditory [None]
  - Aggression [None]
